FAERS Safety Report 5748650-4 (Version None)
Quarter: 2008Q2

REPORT INFORMATION
  Report Type: 
  Country: None (occurrence: None)
  Receive Date: 20080521
  Receipt Date: 20080506
  Transmission Date: 20081010
  Serious: Yes (Death)
  Sender: FDA-Public Use
  Company Number: 2008S1007915

PATIENT
  Age: 83 Year
  Sex: Female

DRUGS (4)
  1. FUROSEMIDE [Suspect]
     Dosage: ORAL
     Route: 048
  2. PROPOXYPHENE HYDROCHLORIDE [Suspect]
     Dosage: ORAL
     Route: 048
  3. ACETAMINOPHEN [Suspect]
     Dosage: ORAL
     Route: 048
  4. CHLORDIAZEPOXIDE [Suspect]
     Dosage: ORAL
     Route: 048

REACTIONS (4)
  - CARDIAC ARREST [None]
  - COMPLETED SUICIDE [None]
  - INCORRECT DOSE ADMINISTERED [None]
  - RESPIRATORY ARREST [None]
